FAERS Safety Report 14710628 (Version 1)
Quarter: 2018Q2

REPORT INFORMATION
  Report Type: Spontaneous
  Country: US (occurrence: US)
  Receive Date: 20180403
  Receipt Date: 20180403
  Transmission Date: 20180711
  Serious: No
  Sender: FDA-Public Use
  Company Number: US-ROCHE-1930094

PATIENT
  Sex: Male

DRUGS (15)
  1. AMLODIPINE [Concomitant]
     Active Substance: AMLODIPINE BESYLATE
  2. DIGOXIN. [Concomitant]
     Active Substance: DIGOXIN
  3. ALLOPURINOL. [Concomitant]
     Active Substance: ALLOPURINOL
     Route: 065
  4. DOXAZOSIN [Concomitant]
     Active Substance: DOXAZOSIN\DOXAZOSIN MESYLATE
  5. CHLORTHALIDONE. [Concomitant]
     Active Substance: CHLORTHALIDONE
  6. GLIPIZIDE. [Concomitant]
     Active Substance: GLIPIZIDE
  7. WARFARIN [Concomitant]
     Active Substance: WARFARIN
  8. LOVASTATIN. [Concomitant]
     Active Substance: LOVASTATIN
  9. METFORMIN [Concomitant]
     Active Substance: METFORMIN HYDROCHLORIDE
     Route: 065
  10. CAPTOPRIL. [Concomitant]
     Active Substance: CAPTOPRIL
  11. SPIRONOLACTONE. [Concomitant]
     Active Substance: SPIRONOLACTONE
  12. ERIVEDGE [Suspect]
     Active Substance: VISMODEGIB
     Indication: BASAL CELL CARCINOMA
     Route: 048
     Dates: start: 20170316
  13. CARVEDILOL. [Concomitant]
     Active Substance: CARVEDILOL
     Route: 065
  14. FINASTERIDE. [Concomitant]
     Active Substance: FINASTERIDE
  15. FUROSEMIDE. [Concomitant]
     Active Substance: FUROSEMIDE

REACTIONS (1)
  - Rhinorrhoea [Unknown]
